FAERS Safety Report 25324967 (Version 2)
Quarter: 2025Q2

REPORT INFORMATION
  Report Type: Report from Study
  Country: US (occurrence: US)
  Receive Date: 20250516
  Receipt Date: 20250613
  Transmission Date: 20250716
  Serious: Yes (Hospitalization)
  Sender: NOVARTIS
  Company Number: US-002147023-NVSC2025US078188

PATIENT
  Sex: Female

DRUGS (1)
  1. SCEMBLIX [Suspect]
     Active Substance: ASCIMINIB HYDROCHLORIDE
     Indication: Product used for unknown indication
     Dosage: 20 MG, BID, 1 EVERY OTHER DAY
     Route: 048

REACTIONS (4)
  - Pancreatic cyst [Unknown]
  - Nausea [Unknown]
  - Diarrhoea [Unknown]
  - Heart rate increased [Unknown]
